FAERS Safety Report 4383962-0 (Version None)
Quarter: 2004Q2

REPORT INFORMATION
  Report Type: 
  Country: None (occurrence: None)
  Receive Date: 20040621
  Receipt Date: 20040607
  Transmission Date: 20050107
  Serious: Yes (Hospitalization)
  Sender: FDA-Public Use
  Company Number: 232727K04USA

PATIENT
  Age: 35 Year
  Sex: Female

DRUGS (4)
  1. REBIF [Suspect]
     Indication: MULTIPLE SCLEROSIS
     Dosage: 22 MCG, SUBCUTANEOUS
     Route: 058
     Dates: start: 20040407
  2. TAMSULOSIN [Concomitant]
  3. PROPACET 100 [Concomitant]
  4. ACETAMINOPHEN [Concomitant]

REACTIONS (5)
  - ANXIETY [None]
  - HEADACHE [None]
  - PRURITUS GENERALISED [None]
  - RASH [None]
  - TREATMENT NONCOMPLIANCE [None]
